FAERS Safety Report 15459275 (Version 1)
Quarter: 2018Q4

REPORT INFORMATION
  Report Type: Spontaneous
  Country: US (occurrence: US)
  Receive Date: 20181003
  Receipt Date: 20181003
  Transmission Date: 20190204
  Serious: No
  Sender: FDA-Public Use
  Company Number: US-SA-2018SA270955

PATIENT
  Age: 43 Year
  Sex: Female

DRUGS (1)
  1. PRALUENT [Suspect]
     Active Substance: ALIROCUMAB
     Indication: BLOOD CHOLESTEROL
     Dosage: 150 MG, QOW
     Route: 058
     Dates: start: 2018

REACTIONS (6)
  - Injection site pruritus [Unknown]
  - Urticaria [Unknown]
  - Injection site swelling [Unknown]
  - Injection site pain [Unknown]
  - White blood cell count increased [Unknown]
  - Injection site erythema [Unknown]

NARRATIVE: CASE EVENT DATE: 2018
